FAERS Safety Report 5373578-1 (Version None)
Quarter: 2007Q2

REPORT INFORMATION
  Report Type: 
  Country: None (occurrence: None)
  Receive Date: 20070628
  Receipt Date: 20070320
  Transmission Date: 20071010
  Serious: No
  Sender: FDA-Public Use
  Company Number: US-BAUSCH-2007BL000914

PATIENT
  Age: 64 Year
  Sex: Female

DRUGS (1)
  1. ZYLET [Suspect]
     Indication: EYE INFLAMMATION
     Route: 047
     Dates: start: 20070314, end: 20070320

REACTIONS (4)
  - DRUG INEFFECTIVE [None]
  - DRY EYE [None]
  - KERATOCONJUNCTIVITIS SICCA [None]
  - OCULAR HYPERAEMIA [None]
